FAERS Safety Report 10523855 (Version 1)
Quarter: 2014Q4

REPORT INFORMATION
  Report Type: Spontaneous
  Country: US (occurrence: US)
  Receive Date: 20141017
  Receipt Date: 20141017
  Transmission Date: 20150528
  Serious: No
  Sender: FDA-Public Use
  Company Number: US-009507513-1410USA005560

PATIENT
  Age: 70 Year
  Sex: Female

DRUGS (2)
  1. AVANDIA [Concomitant]
     Active Substance: ROSIGLITAZONE MALEATE
  2. JANUVIA [Suspect]
     Active Substance: SITAGLIPTIN PHOSPHATE
     Route: 048

REACTIONS (3)
  - Stress [Unknown]
  - Blood glucose increased [Unknown]
  - Adverse event [Unknown]

NARRATIVE: CASE EVENT DATE: 2014
